FAERS Safety Report 11458793 (Version 1)
Quarter: 2015Q3

REPORT INFORMATION
  Report Type: Spontaneous
  Country: US (occurrence: None)
  Receive Date: 20150903
  Receipt Date: 20150903
  Transmission Date: 20151125
  Serious: Yes (Other)
  Sender: FDA-Public Use
  Company Number: None

PATIENT
  Age: 33 Year
  Sex: Male
  Weight: 89.3 kg

DRUGS (1)
  1. ISOTRETINOIN [Suspect]
     Active Substance: ISOTRETINOIN
     Indication: CYST
     Dosage: 1 PILL  BID  ORAL
     Route: 048
     Dates: start: 20150520, end: 20150831

REACTIONS (3)
  - Erectile dysfunction [None]
  - Libido decreased [None]
  - Sexual dysfunction [None]

NARRATIVE: CASE EVENT DATE: 20150824
